FAERS Safety Report 14782999 (Version 20)
Quarter: 2020Q3

REPORT INFORMATION
  Report Type: Report from Study
  Country: DE (occurrence: DE)
  Receive Date: 20180420
  Receipt Date: 20200708
  Transmission Date: 20201102
  Serious: Yes (Hospitalization, Other)
  Sender: FDA-Public Use
  Company Number: DE-INCYTE CORPORATION-2018IN003389

PATIENT

DRUGS (9)
  1. INCB018424 [Suspect]
     Active Substance: RUXOLITINIB
     Indication: MYELOFIBROSIS
     Dosage: 10 MG, QD
     Route: 048
     Dates: start: 20180105, end: 20180207
  2. ALENDRONATE [Concomitant]
     Active Substance: ALENDRONATE SODIUM
     Indication: OSTEOPENIA
     Dosage: 70 MG, QW
     Route: 065
     Dates: start: 20190201
  3. PREDNISOLONE. [Concomitant]
     Active Substance: PREDNISOLONE
     Indication: THROMBOCYTOPENIA
     Dosage: 5 MG, QD
     Route: 065
     Dates: start: 20180105, end: 20180107
  4. PANTOPRAZOLE [Concomitant]
     Active Substance: PANTOPRAZOLE
     Indication: PRODUCT USED FOR UNKNOWN INDICATION
     Dosage: 40 OT, QD
     Route: 065
     Dates: start: 20170915
  5. INCB018424 [Suspect]
     Active Substance: RUXOLITINIB
     Dosage: 10 MG, QD
     Route: 048
     Dates: start: 20181115
  6. PANTOPRAZOLE [Concomitant]
     Active Substance: PANTOPRAZOLE
     Dosage: 40 OT, UNK
     Route: 065
     Dates: start: 20180305
  7. INCB018424 [Suspect]
     Active Substance: RUXOLITINIB
     Dosage: 10 MG, QD
     Route: 048
     Dates: start: 20180508, end: 20181106
  8. L?THYROXINE                        /00068001/ [Concomitant]
     Active Substance: LEVOTHYROXINE
     Indication: HYPOTHYROIDISM
     Dosage: 50 UG, QD
     Route: 065
  9. NOVALGIN (METAMIZOLE SODIUM) [Concomitant]
     Active Substance: METAMIZOLE SODIUM
     Indication: PAIN
     Dosage: UNK (AS NEEDED)
     Route: 065
     Dates: start: 20191119

REACTIONS (27)
  - Bronchitis [Recovered/Resolved]
  - Bronchial wall thickening [Recovered/Resolved]
  - Abdominal pain upper [Unknown]
  - Splenomegaly [Unknown]
  - Urinary tract infection pseudomonal [Recovered/Resolved]
  - Thrombocytopenia [Recovering/Resolving]
  - Vomiting [Recovered/Resolved]
  - Emphysema [Recovered/Resolved]
  - Erysipelas [Recovered/Resolved]
  - Pyrexia [Unknown]
  - Anaemia [Recovering/Resolving]
  - Concomitant disease aggravated [Not Recovered/Not Resolved]
  - Osteopenia [Not Recovered/Not Resolved]
  - Erysipelas [Recovered/Resolved]
  - Hypokalaemia [Recovered/Resolved]
  - General physical health deterioration [Unknown]
  - Spinal osteoarthritis [Unknown]
  - Degenerative bone disease [Unknown]
  - Headache [Recovered/Resolved]
  - Diarrhoea [Recovered/Resolved]
  - International normalised ratio increased [Unknown]
  - Influenza [Recovering/Resolving]
  - Pain in extremity [Recovered/Resolved]
  - Aortic arteriosclerosis [Unknown]
  - Abdominal pain lower [Unknown]
  - Abdominal discomfort [Unknown]
  - Weight increased [Unknown]

NARRATIVE: CASE EVENT DATE: 20180207
